FAERS Safety Report 21521028 (Version 2)
Quarter: 2022Q4

REPORT INFORMATION
  Report Type: Report from Study
  Country: US (occurrence: US)
  Receive Date: 20221028
  Receipt Date: 20221223
  Transmission Date: 20230113
  Serious: Yes (Death, Hospitalization)
  Sender: FDA-Public Use
  Company Number: US-OTSUKA-2022_049729

PATIENT
  Age: 78 Year
  Sex: Male

DRUGS (2)
  1. CEDAZURIDINE\DECITABINE [Suspect]
     Active Substance: CEDAZURIDINE\DECITABINE
     Indication: Myelodysplastic syndrome
     Dosage: 1 DF (35/100 MG), QD  TABLET BY MOUTH DAILY ON DAYS 1-5 OF EACH 28-DAY CYCLE
     Route: 048
     Dates: start: 20220924
  2. CEDAZURIDINE\DECITABINE [Suspect]
     Active Substance: CEDAZURIDINE\DECITABINE
     Indication: Refractory anaemia with an excess of blasts

REACTIONS (6)
  - Death [Fatal]
  - Haemoglobin abnormal [Unknown]
  - Pancytopenia [Unknown]
  - Oral candidiasis [Unknown]
  - Diarrhoea [Recovered/Resolved]
  - Febrile neutropenia [Unknown]

NARRATIVE: CASE EVENT DATE: 20221017
